FAERS Safety Report 14681053 (Version 1)
Quarter: 2018Q1

REPORT INFORMATION
  Report Type: Spontaneous
  Country: US (occurrence: US)
  Receive Date: 20180326
  Receipt Date: 20180326
  Transmission Date: 20180509
  Serious: Yes (Life-Threatening, Hospitalization, Other)
  Sender: FDA-Public Use
  Company Number: US-BAXTER-2018BAX009211

PATIENT
  Age: 29 Year
  Sex: Female

DRUGS (7)
  1. IVABRADINE HYDROCHLORIDE [Suspect]
     Active Substance: IVABRADINE HYDROCHLORIDE
     Indication: CONGESTIVE CARDIOMYOPATHY
     Route: 065
  2. IVABRADINE HYDROCHLORIDE [Suspect]
     Active Substance: IVABRADINE HYDROCHLORIDE
     Indication: SINUS BRADYCARDIA
  3. IVABRADINE HYDROCHLORIDE [Suspect]
     Active Substance: IVABRADINE HYDROCHLORIDE
     Indication: ANGINA PECTORIS
  4. LISINOPRIL. [Concomitant]
     Active Substance: LISINOPRIL
     Indication: CONGESTIVE CARDIOMYOPATHY
     Route: 065
  5. FUROSEMIDE INJECTION USP [Suspect]
     Active Substance: FUROSEMIDE
     Indication: CONGESTIVE CARDIOMYOPATHY
     Route: 065
  6. METOPROLOL TARTRATE INJECTION, USP [Suspect]
     Active Substance: METOPROLOL TARTRATE
     Indication: CONGESTIVE CARDIOMYOPATHY
     Route: 065
  7. SPIRONOLACTONE. [Concomitant]
     Active Substance: SPIRONOLACTONE
     Indication: CONGESTIVE CARDIOMYOPATHY
     Route: 065

REACTIONS (10)
  - Cardio-respiratory arrest [Unknown]
  - Drug interaction [Unknown]
  - Ventricular fibrillation [Unknown]
  - Myocardial necrosis marker increased [Unknown]
  - Chest discomfort [Unknown]
  - Electrocardiogram QT prolonged [Unknown]
  - Dyspnoea [Unknown]
  - Ventricular tachycardia [Unknown]
  - Torsade de pointes [Unknown]
  - Syncope [Unknown]
